FAERS Safety Report 12876719 (Version 1)
Quarter: 2016Q4

REPORT INFORMATION
  Report Type: Spontaneous
  Country: US (occurrence: US)
  Receive Date: 20161021
  Receipt Date: 20161021
  Transmission Date: 20170207
  Serious: Yes (Hospitalization)
  Sender: FDA-Public Use
  Company Number: None

PATIENT
  Age: 72 Year
  Sex: Male
  Weight: 136.4 kg

DRUGS (1)
  1. WARFARIN [Suspect]
     Active Substance: WARFARIN
     Indication: ATRIAL FIBRILLATION
     Dosage: MG PO
     Route: 048
     Dates: start: 20001107, end: 20160727

REACTIONS (10)
  - Dermatitis bullous [None]
  - Purpura [None]
  - Pemphigoid [None]
  - Skin necrosis [None]
  - Similar reaction on previous exposure to drug [None]
  - Drug hypersensitivity [None]
  - Drug eruption [None]
  - Streptococcal infection [None]
  - Vasculitic rash [None]
  - Petechiae [None]

NARRATIVE: CASE EVENT DATE: 20160717
